FAERS Safety Report 14417470 (Version 2)
Quarter: 2018Q1

REPORT INFORMATION
  Report Type: Report from Study
  Country: US (occurrence: US)
  Receive Date: 20180122
  Receipt Date: 20180309
  Transmission Date: 20180509
  Serious: Yes (Disabling, Other)
  Sender: FDA-Public Use
  Company Number: US-BAUSCH-BL-2018-001727

PATIENT
  Age: 45 Year
  Sex: Female
  Weight: 74.91 kg

DRUGS (1)
  1. CUPRIMINE [Suspect]
     Active Substance: PENICILLAMINE
     Indication: SCLERODERMA
     Route: 048
     Dates: start: 199908

REACTIONS (5)
  - Disability [Unknown]
  - Osteomyelitis [Unknown]
  - Road traffic accident [Unknown]
  - Pain [Unknown]
  - Bone marrow disorder [Unknown]

NARRATIVE: CASE EVENT DATE: 200212
